FAERS Safety Report 18135775 (Version 1)
Quarter: 2020Q3

REPORT INFORMATION
  Report Type: Report from Study
  Country: IT (occurrence: IT)
  Receive Date: 20200811
  Receipt Date: 20200811
  Transmission Date: 20201103
  Serious: Yes (Other)
  Sender: FDA-Public Use
  Company Number: IT-MYLANLABS-2020M1069481

PATIENT
  Age: 74 Year
  Sex: Female

DRUGS (2)
  1. EUTIROX [Concomitant]
     Active Substance: LEVOTHYROXINE SODIUM
     Dosage: UNK
  2. DILTIAZEM. [Suspect]
     Active Substance: DILTIAZEM
     Indication: ISCHAEMIC HEART DISEASE PROPHYLAXIS
     Dosage: 200 MILLIGRAM, QD
     Route: 048

REACTIONS (1)
  - Nodal rhythm [Recovered/Resolved]

NARRATIVE: CASE EVENT DATE: 20200706
